FAERS Safety Report 19580686 (Version 1)
Quarter: 2021Q3

REPORT INFORMATION
  Report Type: Spontaneous
  Country: US (occurrence: US)
  Receive Date: 20210719
  Receipt Date: 20210719
  Transmission Date: 20211014
  Serious: No
  Sender: FDA-Public Use
  Company Number: US-NOVOPROD-800186

PATIENT
  Age: 58 Year
  Sex: Female

DRUGS (6)
  1. NOVOFINE PLUS 4MM (32G) [Concomitant]
     Indication: DIABETES MELLITUS
     Dosage: UNK
  2. OZEMPIC [Suspect]
     Active Substance: SEMAGLUTIDE
     Dosage: 0.5 MG, QW
     Route: 058
     Dates: end: 202103
  3. NOVOFINE PLUS 4MM (32G) [Concomitant]
     Dosage: UNK
  4. NOVOFINE PLUS 4MM (32G) [Concomitant]
     Dosage: UNK
  5. OZEMPIC [Suspect]
     Active Substance: SEMAGLUTIDE
     Dosage: 0.5 MG, QW
     Route: 058
  6. OZEMPIC [Suspect]
     Active Substance: SEMAGLUTIDE
     Indication: DIABETES MELLITUS
     Dosage: 0.5 MG, QW
     Route: 058
     Dates: start: 20201209

REACTIONS (4)
  - Oropharyngeal pain [Recovered/Resolved]
  - Mouth haemorrhage [Recovered/Resolved]
  - Neck mass [Recovered/Resolved]
  - Dysphonia [Recovered/Resolved]

NARRATIVE: CASE EVENT DATE: 20210101
